FAERS Safety Report 13526737 (Version 1)
Quarter: 2017Q2

REPORT INFORMATION
  Report Type: Spontaneous
  Country: US (occurrence: US)
  Receive Date: 20170508
  Receipt Date: 20170508
  Transmission Date: 20170830
  Serious: Yes (Other)
  Sender: FDA-Public Use
  Company Number: None

PATIENT
  Sex: Male

DRUGS (1)
  1. TALTZ [Suspect]
     Active Substance: IXEKIZUMAB
     Indication: PSORIASIS
     Dosage: BIW X 12 WKS THEN ONCE MONTHLY
     Route: 058
     Dates: start: 20170417

REACTIONS (3)
  - Therapy cessation [None]
  - Joint swelling [None]
  - Arthralgia [None]
